FAERS Safety Report 6172888-8 (Version None)
Quarter: 2009Q2

REPORT INFORMATION
  Report Type: 
  Country: None (occurrence: None)
  Receive Date: 20090430
  Receipt Date: 20090421
  Transmission Date: 20091009
  Serious: Yes (Death, Other)
  Sender: FDA-Public Use
  Company Number: US-CELGENEUS-163-21880-09042348

PATIENT

DRUGS (2)
  1. REVLIMID [Suspect]
     Indication: MYELOFIBROSIS
     Route: 048
  2. PREDNISONE [Suspect]
     Indication: MYELOFIBROSIS
     Dosage: TAPER 30MG QD/15MGQD/15MG QOD
     Route: 065

REACTIONS (6)
  - BONE MARROW FAILURE [None]
  - DIARRHOEA [None]
  - DISEASE PROGRESSION [None]
  - MYELOFIBROSIS [None]
  - NEUTROPENIA [None]
  - THROMBOCYTOPENIA [None]
